FAERS Safety Report 17568261 (Version 1)
Quarter: 2020Q1

REPORT INFORMATION
  Report Type: Spontaneous
  Country: US (occurrence: US)
  Receive Date: 20200320
  Receipt Date: 20200320
  Transmission Date: 20200409
  Serious: Yes (Hospitalization, Other)
  Sender: FDA-Public Use
  Company Number: US-BAUSCH-BL-2020-008346

PATIENT
  Age: 53 Year
  Sex: Male

DRUGS (3)
  1. METRONIDAZOLE. [Suspect]
     Active Substance: METRONIDAZOLE
     Indication: AUTOIMMUNE HEPATITIS
  2. METRONIDAZOLE. [Suspect]
     Active Substance: METRONIDAZOLE
     Indication: HYPERAMMONAEMIA
  3. METRONIDAZOLE. [Suspect]
     Active Substance: METRONIDAZOLE
     Indication: NON-ALCOHOLIC STEATOHEPATITIS
     Route: 065

REACTIONS (2)
  - Encephalopathy [Recovered/Resolved]
  - Cerebral haemorrhage [Recovering/Resolving]
